FAERS Safety Report 5907362-4 (Version None)
Quarter: 2008Q4

REPORT INFORMATION
  Report Type: 
  Country: None (occurrence: None)
  Receive Date: 20081003
  Receipt Date: 20080922
  Transmission Date: 20090506
  Serious: Yes (Hospitalization, Other)
  Sender: FDA-Public Use
  Company Number: DE-ELI_LILLY_AND_COMPANY-DE200809005329

PATIENT
  Age: 42 Year
  Sex: Male

DRUGS (1)
  1. GEMZAR [Suspect]
     Indication: ADRENOCORTICAL CARCINOMA
     Dosage: 1000 MG/M2, (CUMULATED DOSE APPROX. 20 G).
     Route: 065
     Dates: end: 20060301

REACTIONS (19)
  - ADRENAL NEOPLASM [None]
  - BLINDNESS [None]
  - BLOOD CREATININE INCREASED [None]
  - BLOOD PRESSURE INCREASED [None]
  - BLOOD UREA INCREASED [None]
  - C-REACTIVE PROTEIN INCREASED [None]
  - CONFUSIONAL STATE [None]
  - HAEMOLYTIC URAEMIC SYNDROME [None]
  - HEADACHE [None]
  - HYPERKALAEMIA [None]
  - LEUKOCYTOSIS [None]
  - NAUSEA [None]
  - NORMOCHROMIC NORMOCYTIC ANAEMIA [None]
  - PROTEINURIA [None]
  - REVERSIBLE POSTERIOR LEUKOENCEPHALOPATHY SYNDROME [None]
  - THROMBOCYTOPENIA [None]
  - THROMBOTIC MICROANGIOPATHY [None]
  - TREATMENT FAILURE [None]
  - VOMITING [None]
